FAERS Safety Report 10581110 (Version 1)
Quarter: 2014Q4

REPORT INFORMATION
  Report Type: Spontaneous
  Country: HN (occurrence: None)
  Receive Date: 20141112
  Receipt Date: 20141112
  Transmission Date: 20150529
  Serious: Yes (Disabling, Other)
  Sender: FDA-Public Use
  Company Number: None

PATIENT
  Age: 30 Year
  Sex: Female
  Weight: 62.6 kg

DRUGS (2)
  1. DICLOFENACE (DICLOFENAC) [Suspect]
     Active Substance: DICLOFENAC SODIUM
     Indication: DYSMENORRHOEA
     Dosage: 13 YEARS EVERY MONTH^2 DOSIS MIN MENSTRUATION.
     Route: 030
  2. ACETAMINOPHEN. [Suspect]
     Active Substance: ACETAMINOPHEN

REACTIONS (3)
  - Sinus tachycardia [None]
  - Fear [None]
  - Anaphylactic reaction [None]

NARRATIVE: CASE EVENT DATE: 20141102
